FAERS Safety Report 9541069 (Version 4)
Quarter: 2013Q4

REPORT INFORMATION
  Report Type: Report from Study
  Country: GR (occurrence: GR)
  Receive Date: 20130923
  Receipt Date: 20131201
  Transmission Date: 20140711
  Serious: Yes (Death, Life-Threatening, Hospitalization, Other)
  Sender: FDA-Public Use
  Company Number: GR-MERCK-1309GRC006412

PATIENT
  Age: 71 Year
  Sex: Female
  Weight: 60 kg

DRUGS (9)
  1. DEXAMETHASONE [Suspect]
     Indication: PLASMA CELL MYELOMA
     Dosage: 20 MG ON DAYS ONE, TWO, FOUR, FIVE, EIGHT, NINE, 11 AND 12 EVERY 21 DAYS
     Route: 048
     Dates: start: 20121127, end: 20130420
  2. BORTEZOMIB [Suspect]
     Indication: PLASMA CELL MYELOMA
     Dosage: 1.3 MG/M2 ON DAYS ONE, FOUR, EIGHT AND 11 EVERY 21 DAYS
     Route: 058
     Dates: start: 20121127, end: 20130419
  3. STUDY DRUG (UNSPECIFIED) [Suspect]
     Indication: PLASMA CELL MYELOMA
     Dosage: UNK
     Dates: start: 20121127, end: 20130419
  4. T4 [Concomitant]
     Indication: HYPOTHYROIDISM
     Dosage: UNK
     Dates: start: 20130523
  5. PENRAZOL [Concomitant]
     Indication: PROPHYLAXIS
     Dosage: UNK
     Dates: start: 20121120
  6. SOTALOL HYDROCHLORIDE [Concomitant]
     Indication: ATRIAL FIBRILLATION
     Dosage: UNK
     Dates: start: 201305
  7. LYRICA [Concomitant]
     Indication: PERIPHERAL SENSORY NEUROPATHY
     Dosage: UNK
     Dates: start: 20130117
  8. ALOPERIDIN [Concomitant]
     Indication: ANXIETY DISORDER
     Dosage: UNK
     Dates: start: 20130603
  9. CALCIORAL [Concomitant]
     Indication: HYPOCALCAEMIA
     Dosage: UNK
     Dates: start: 20130609

REACTIONS (5)
  - Loss of consciousness [Fatal]
  - Hypovolaemic shock [Fatal]
  - Haemorrhage [Fatal]
  - Febrile neutropenia [Recovered/Resolved]
  - Anaemia [Not Recovered/Not Resolved]
